FAERS Safety Report 5472472-5 (Version None)
Quarter: 2007Q4

REPORT INFORMATION
  Report Type: 
  Country: None (occurrence: None)
  Receive Date: 20071001
  Receipt Date: 20070926
  Transmission Date: 20080405
  Serious: Yes (Other)
  Sender: FDA-Public Use
  Company Number: IT-BRISTOL-MYERS SQUIBB COMPANY-13918065

PATIENT
  Age: 77 Year
  Sex: Male

DRUGS (7)
  1. COUMADIN [Suspect]
     Indication: ATRIAL FIBRILLATION
     Route: 048
     Dates: start: 20050101, end: 20070803
  2. METHOTREXATE TABS [Suspect]
     Indication: RHEUMATOID ARTHRITIS
     Route: 048
     Dates: start: 20050101, end: 20070803
  3. LASIX [Concomitant]
     Dates: start: 20050101, end: 20070803
  4. DELTACORTENE [Concomitant]
     Indication: RHEUMATOID ARTHRITIS
     Dates: start: 20050101, end: 20070803
  5. LANOXIN [Concomitant]
     Indication: MYOCARDIAL ISCHAEMIA
     Dates: start: 20050101, end: 20070803
  6. LANOXIN [Concomitant]
     Dates: start: 20050101, end: 20070803
  7. ZYLORIC [Concomitant]
     Dates: start: 20050101, end: 20070803

REACTIONS (3)
  - ANAEMIA [None]
  - INTERNATIONAL NORMALISED RATIO INCREASED [None]
  - THROMBOCYTOPENIA [None]
